FAERS Safety Report 10381673 (Version 2)
Quarter: 2014Q4

REPORT INFORMATION
  Report Type: Spontaneous
  Country: FR (occurrence: FR)
  Receive Date: 20140813
  Receipt Date: 20141107
  Transmission Date: 20150528
  Serious: Yes (Other)
  Sender: FDA-Public Use
  Company Number: FR-WATSON-2014-17310

PATIENT
  Age: 27 Year
  Sex: Male

DRUGS (1)
  1. RAPAFLO [Suspect]
     Active Substance: SILODOSIN
     Indication: BLADDER NECK OBSTRUCTION
     Dosage: UNK, UNKNOWN
     Route: 048
     Dates: start: 201404, end: 201407

REACTIONS (2)
  - Epilepsy [Recovered/Resolved]
  - Off label use [Unknown]

NARRATIVE: CASE EVENT DATE: 20140628
